FAERS Safety Report 11155366 (Version 1)
Quarter: 2015Q2

REPORT INFORMATION
  Report Type: Spontaneous
  Country: GB (occurrence: GB)
  Receive Date: 20150602
  Receipt Date: 20150602
  Transmission Date: 20150821
  Serious: Yes (Other)
  Sender: FDA-Public Use
  Company Number: GB-TEVA-559739ISR

PATIENT
  Age: 45 Year
  Sex: Female

DRUGS (1)
  1. TAMOXIFEN [Suspect]
     Active Substance: TAMOXIFEN
     Indication: BREAST CANCER
     Dosage: 20 MILLIGRAM DAILY;
     Route: 065
     Dates: start: 201101

REACTIONS (6)
  - Muscle spasms [Recovered/Resolved]
  - Quality of life decreased [Unknown]
  - Malaise [Unknown]
  - Malaise [Unknown]
  - Musculoskeletal stiffness [Unknown]
  - Rash [Unknown]

NARRATIVE: CASE EVENT DATE: 2012
